FAERS Safety Report 22199944 (Version 3)
Quarter: 2024Q1

REPORT INFORMATION
  Report Type: Spontaneous
  Country: US (occurrence: US)
  Receive Date: 20230412
  Receipt Date: 20240206
  Transmission Date: 20240410
  Serious: No
  Sender: FDA-Public Use
  Company Number: US-SA-SAC20230106000180

PATIENT
  Sex: Female

DRUGS (1)
  1. CEREZYME [Suspect]
     Active Substance: IMIGLUCERASE
     Indication: Gaucher^s disease
     Dosage: 200 IU, QOW
     Route: 042
     Dates: start: 20211210

REACTIONS (2)
  - Maternal exposure during breast feeding [Unknown]
  - Maternal exposure during pregnancy [Unknown]
